FAERS Safety Report 11109263 (Version 1)
Quarter: 2015Q2

REPORT INFORMATION
  Report Type: Spontaneous
  Country: US (occurrence: US)
  Receive Date: 20150513
  Receipt Date: 20150513
  Transmission Date: 20150821
  Serious: Yes (Other)
  Sender: FDA-Public Use
  Company Number: US-SUN PHARMACEUTICAL INDUSTRIES LTD-2015US-97149

PATIENT

DRUGS (1)
  1. TIAGABINE [Suspect]
     Active Substance: TIAGABINE
     Indication: EPILEPSY
     Dosage: UNK
     Route: 065

REACTIONS (1)
  - Oscillopsia [Unknown]
